FAERS Safety Report 10864509 (Version 1)
Quarter: 2015Q1

REPORT INFORMATION
  Report Type: Spontaneous
  Country: US (occurrence: US)
  Receive Date: 20150223
  Receipt Date: 20150223
  Transmission Date: 20150721
  Serious: No
  Sender: FDA-Public Use
  Company Number: US-CELGENEUS-163-21880-14034090

PATIENT
  Age: 74 Year
  Sex: Male

DRUGS (2)
  1. REVLIMID [Suspect]
     Active Substance: LENALIDOMIDE
     Indication: PLASMA CELL MYELOMA
     Route: 048
     Dates: start: 201309
  2. REVLIMID [Suspect]
     Active Substance: LENALIDOMIDE
     Route: 048
     Dates: start: 20140108, end: 201403

REACTIONS (11)
  - Insomnia [Unknown]
  - Rash [Recovering/Resolving]
  - Dry mouth [Unknown]
  - Fatigue [Unknown]
  - Muscle spasms [Unknown]
  - Pyrexia [Unknown]
  - Dry skin [Unknown]
  - Anxiety [Unknown]
  - Asthenia [Unknown]
  - Constipation [Unknown]
  - Tremor [Unknown]

NARRATIVE: CASE EVENT DATE: 20140108
